FAERS Safety Report 8476968 (Version 3)
Quarter: 2012Q4

REPORT INFORMATION
  Report Type: 
  Country: US (occurrence: US)
  Receive Date: 20120326
  Receipt Date: 20121001
  Transmission Date: 20130627
  Serious: Yes (Other)
  Sender: FDA-Public Use
  Company Number: PHEH2012US006341

PATIENT
  Sex: Female

DRUGS (5)
  1. GILENYA [Suspect]
     Indication: MULTIPLE SCLEROSIS
     Dosage: 0.5 mg, QD
     Route: 048
     Dates: start: 201110
  2. ALPRAZOLAM [Concomitant]
     Dosage: 2 mg, UNK
  3. OXYCODONE [Concomitant]
     Dosage: 30 mg, UNK
  4. OXYCONTIN [Concomitant]
     Dosage: 60 mg, UNK
  5. PROAIR HFA (ALBUTEROL SULFATE) INHALATION AEROSOL [Concomitant]

REACTIONS (2)
  - Convulsion [Not Recovered/Not Resolved]
  - Hypotension [Recovering/Resolving]
